FAERS Safety Report 10421371 (Version 2)
Quarter: 2014Q3

REPORT INFORMATION
  Report Type: Spontaneous
  Country: US (occurrence: US)
  Receive Date: 20140901
  Receipt Date: 20140905
  Transmission Date: 20150326
  Serious: No
  Sender: FDA-Public Use
  Company Number: US-AMGEN INC.-USASP2014064731

PATIENT
  Age: 61 Year
  Sex: Female

DRUGS (1)
  1. ENBREL [Suspect]
     Active Substance: ETANERCEPT
     Indication: RHEUMATOID ARTHRITIS
     Dosage: 50 MG, QWK
     Route: 065
     Dates: start: 20120801, end: 201306

REACTIONS (10)
  - Rash papular [Recovered/Resolved]
  - Oral candidiasis [Recovered/Resolved]
  - Injection site pruritus [Recovered/Resolved]
  - Conjunctivitis [Recovered/Resolved]
  - Rash pruritic [Recovered/Resolved]
  - Localised infection [Recovered/Resolved]
  - Joint lock [Recovered/Resolved]
  - Injection site erythema [Recovered/Resolved]
  - Rash [Recovered/Resolved]
  - Joint range of motion decreased [Recovered/Resolved]

NARRATIVE: CASE EVENT DATE: 2012
